FAERS Safety Report 4527224-7 (Version None)
Quarter: 2004Q4

REPORT INFORMATION
  Report Type: 
  Country: None (occurrence: None)
  Receive Date: 20041215
  Receipt Date: 20040907
  Transmission Date: 20050328
  Serious: Yes (Death, Other)
  Sender: FDA-Public Use
  Company Number: PHBS2004JP11956

PATIENT
  Age: 86 Year
  Sex: Female

DRUGS (4)
  1. VOLTAREN [Suspect]
     Indication: PAIN
     Dosage: UNK, UNK
     Route: 048
     Dates: start: 20040824, end: 20040824
  2. VOLTAREN [Suspect]
     Dosage: UNK, UNK
     Route: 048
     Dates: start: 20040902, end: 20040902
  3. PICIBANIL [Concomitant]
     Dosage: UNK, UNK
     Route: 042
     Dates: start: 20040823, end: 20040823
  4. PICIBANIL [Concomitant]
     Dates: start: 20040902, end: 20040902

REACTIONS (4)
  - ANOREXIA [None]
  - GENERAL PHYSICAL HEALTH DETERIORATION [None]
  - LUNG NEOPLASM MALIGNANT [None]
  - URINARY RETENTION [None]
